FAERS Safety Report 13788993 (Version 1)
Quarter: 2017Q3

REPORT INFORMATION
  Report Type: Spontaneous
  Country: US (occurrence: US)
  Receive Date: 20170725
  Receipt Date: 20170725
  Transmission Date: 20171127
  Serious: No
  Sender: FDA-Public Use
  Company Number: US-UNITED THERAPEUTICS-UNT-2016-020023

PATIENT
  Age: 74 Year
  Sex: Male
  Weight: 82.99 kg

DRUGS (6)
  1. TYVASO [Suspect]
     Active Substance: TREPROSTINIL
     Indication: PULMONARY ARTERIAL HYPERTENSION
     Dosage: 18-72 MICROGRAMS, QID
     Dates: start: 20150825
  2. TYVASO [Suspect]
     Active Substance: TREPROSTINIL
     Dosage: 18 - 54 MICROGRAMS, QID
  3. OPSUMIT [Concomitant]
     Active Substance: MACITENTAN
     Indication: PRODUCT USED FOR UNKNOWN INDICATION
  4. SILDENAFIL CITRATE. [Concomitant]
     Active Substance: SILDENAFIL CITRATE
     Indication: PRODUCT USED FOR UNKNOWN INDICATION
  5. ORENITRAM [Suspect]
     Active Substance: TREPROSTINIL
     Indication: PULMONARY ARTERIAL HYPERTENSION
     Dosage: 2.5 MG, TID
     Route: 048
     Dates: start: 20161209
  6. ORENITRAM [Suspect]
     Active Substance: TREPROSTINIL
     Dosage: 2.625 MG, TID
     Route: 048

REACTIONS (5)
  - Abdominal pain upper [Unknown]
  - Headache [Unknown]
  - Off label use [Unknown]
  - Diarrhoea [Recovering/Resolving]
  - Rash generalised [Unknown]

NARRATIVE: CASE EVENT DATE: 201612
